FAERS Safety Report 5021817-9 (Version None)
Quarter: 2006Q2

REPORT INFORMATION
  Report Type: 
  Country: None (occurrence: None)
  Receive Date: 20060605
  Receipt Date: 20060519
  Transmission Date: 20061013
  Serious: Yes (Hospitalization)
  Sender: FDA-Public Use
  Company Number: SUS1-2006-00252

PATIENT
  Age: 72 Year
  Sex: Female
  Weight: 60.3 kg

DRUGS (2)
  1. FOSRENOL [Suspect]
     Indication: HYPERPHOSPHATAEMIA
     Dates: start: 20050311, end: 20050713
  2. RENAGEL /01459901/(SEVELAMER) [Concomitant]

REACTIONS (1)
  - CELLULITIS [None]
